FAERS Safety Report 5216640-6 (Version None)
Quarter: 2007Q1

REPORT INFORMATION
  Report Type: 
  Country: None (occurrence: None)
  Receive Date: 20061130
  Receipt Date: 20060918
  Transmission Date: 20070707
  Serious: Yes (Other)
  Sender: FDA-Public Use
  Company Number: US200606005605

PATIENT
  Age: 67 Year
  Sex: Male
  Weight: 108.8 kg

DRUGS (5)
  1. ZYPREXA [Suspect]
     Indication: DEPRESSION
     Dosage: 7.5 MG, 3/D, ORAL
     Route: 048
     Dates: start: 19990310
  2. STELAZINE [Concomitant]
  3. WELLBUTRIN [Concomitant]
  4. SURMONTIL /SCH/ (TRIMIPRAMINE MALEATE) [Concomitant]
  5. EFFEXOR [Concomitant]

REACTIONS (11)
  - BLOOD CHOLESTEROL INCREASED [None]
  - BLOOD TRIGLYCERIDES INCREASED [None]
  - DIABETES MELLITUS [None]
  - DIABETIC COMA [None]
  - DIABETIC KETOACIDOSIS [None]
  - HYPERTENSION [None]
  - HYPOGLYCAEMIA [None]
  - OBESITY [None]
  - PANCREATITIS [None]
  - PRESCRIBED OVERDOSE [None]
  - VISION BLURRED [None]
